FAERS Safety Report 6356552-8 (Version None)
Quarter: 2009Q3

REPORT INFORMATION
  Report Type: 
  Country: None (occurrence: None)
  Receive Date: 20090911
  Receipt Date: 20090911
  Transmission Date: 20100115
  Serious: No
  Sender: FDA-Public Use
  Company Number: None

PATIENT
  Sex: Male
  Weight: 63.5036 kg

DRUGS (1)
  1. MULTAQ [Suspect]
     Indication: CARDIAC DISORDER
     Dosage: 400 MG
     Dates: start: 20090810, end: 20090909

REACTIONS (1)
  - OEDEMA PERIPHERAL [None]
